FAERS Safety Report 5317958-9 (Version None)
Quarter: 2007Q2

REPORT INFORMATION
  Report Type: 
  Country: None (occurrence: None)
  Receive Date: 20070507
  Receipt Date: 20070427
  Transmission Date: 20071010
  Serious: Yes (Hospitalization)
  Sender: FDA-Public Use
  Company Number: US-BAYER-200711384BWH

PATIENT
  Age: 32 Year
  Sex: Female

DRUGS (2)
  1. AVELOX [Suspect]
     Indication: DRUG USE FOR UNKNOWN INDICATION
     Route: 048
     Dates: start: 20070423
  2. AVELOX [Suspect]
     Route: 048
     Dates: start: 20070424

REACTIONS (4)
  - ANXIETY [None]
  - MUSCLE SPASMS [None]
  - NEUROPATHY [None]
  - TENDONITIS [None]
